FAERS Safety Report 13386801 (Version 3)
Quarter: 2020Q2

REPORT INFORMATION
  Report Type: Spontaneous
  Country: US (occurrence: US)
  Receive Date: 20170330
  Receipt Date: 20200612
  Transmission Date: 20200713
  Serious: Yes (Hospitalization, Other)
  Sender: FDA-Public Use
  Company Number: US-ALEXION-A201702934

PATIENT
  Sex: Female

DRUGS (2)
  1. SOLIRIS [Suspect]
     Active Substance: ECULIZUMAB
     Dosage: UNK
     Route: 065
  2. SOLIRIS [Suspect]
     Active Substance: ECULIZUMAB
     Indication: PAROXYSMAL NOCTURNAL HAEMOGLOBINURIA
     Dosage: UNK
     Route: 042

REACTIONS (6)
  - Deep vein thrombosis [Recovering/Resolving]
  - Infusion related reaction [Unknown]
  - Infusion site pain [Unknown]
  - Thrombosis [Recovering/Resolving]
  - Skin cancer [Unknown]
  - Poor venous access [Unknown]

NARRATIVE: CASE EVENT DATE: 2017
